FAERS Safety Report 9700618 (Version 1)
Quarter: 2013Q4

REPORT INFORMATION
  Report Type: Spontaneous
  Country: US (occurrence: US)
  Receive Date: 20131121
  Receipt Date: 20131121
  Transmission Date: 20140711
  Serious: No
  Sender: FDA-Public Use
  Company Number: US-PFIZER INC-2013328392

PATIENT
  Age: 55 Year
  Sex: Female
  Weight: 63.49 kg

DRUGS (3)
  1. ADVIL [Suspect]
     Indication: PAIN IN EXTREMITY
     Dosage: 800 MG (4X200MG), EVERY 4 HRS
     Route: 048
     Dates: start: 201311
  2. NORCO [Concomitant]
     Dosage: UNK
  3. IBUPROFEN [Concomitant]
     Indication: SWELLING
     Dosage: UNK

REACTIONS (2)
  - Overdose [Unknown]
  - Drug ineffective [Unknown]
